FAERS Safety Report 7647302-3 (Version None)
Quarter: 2011Q3

REPORT INFORMATION
  Report Type: 
  Country: None (occurrence: None)
  Receive Date: 20110801
  Receipt Date: 20110726
  Transmission Date: 20111222
  Serious: Yes (Hospitalization)
  Sender: FDA-Public Use
  Company Number: FR-ROCHE-787072

PATIENT
  Sex: Male
  Weight: 95 kg

DRUGS (5)
  1. RABEPRAZOLE SODIUM [Concomitant]
  2. TRANXENE [Concomitant]
  3. DITROPAN [Concomitant]
  4. ATORVASTATIN CALCIUM [Concomitant]
  5. ROCEPHIN [Suspect]
     Dosage: START DATE: 16 JUNE, STOP DATE: 22 JUNE, FREQUENCY: DAILY
     Route: 058

REACTIONS (4)
  - ENTEROBACTER TEST POSITIVE [None]
  - ARTHRITIS BACTERIAL [None]
  - GOUTY ARTHRITIS [None]
  - LEUKOCYTURIA [None]
